FAERS Safety Report 21336275 (Version 1)
Quarter: 2022Q3

REPORT INFORMATION
  Report Type: Spontaneous
  Country: US (occurrence: None)
  Receive Date: 20220914
  Receipt Date: 20220914
  Transmission Date: 20221027
  Serious: Yes (Hospitalization)
  Sender: FDA-Public Use
  Company Number: None

PATIENT
  Sex: Female

DRUGS (42)
  1. ENBREL [Suspect]
     Active Substance: ETANERCEPT
     Indication: Rheumatoid arthritis
     Dosage: FREQUENCY : WEEKLY;?
     Route: 058
     Dates: start: 20210116
  2. AIMOVIG [Concomitant]
     Active Substance: ERENUMAB-AOOE
  3. ALBUTEROL AER HFA [Concomitant]
  4. ALENDRONATE [Concomitant]
     Active Substance: ALENDRONATE SODIUM
  5. ALPRAZOLAM [Concomitant]
     Active Substance: ALPRAZOLAM
  6. ALPRAZOLAM [Concomitant]
     Active Substance: ALPRAZOLAM
  7. AZITHROMYCIN [Concomitant]
     Active Substance: AZITHROMYCIN
  8. BACLOFEN [Concomitant]
     Active Substance: BACLOFEN
  9. CEVIMELINE [Concomitant]
     Active Substance: CEVIMELINE
  10. COMBIVENT AER [Concomitant]
  11. CYANOCOBALAMIN [Concomitant]
     Active Substance: CYANOCOBALAMIN
  12. CYMBALTA [Concomitant]
     Active Substance: DULOXETINE HYDROCHLORIDE
  13. DEXAMETHASONE [Concomitant]
     Active Substance: DEXAMETHASONE
  14. DICLOFENAC [Concomitant]
     Active Substance: DICLOFENAC
  15. DULOXETINE [Concomitant]
     Active Substance: DULOXETINE
  16. ELIQUIS [Concomitant]
     Active Substance: APIXABAN
  17. FAMOTIDINE [Concomitant]
     Active Substance: FAMOTIDINE
  18. FAMOTIDINE [Concomitant]
     Active Substance: FAMOTIDINE
  19. FINASTERINE [Concomitant]
  20. FLUTICASONE SPR [Concomitant]
  21. GABAPENTIN [Concomitant]
     Active Substance: GABAPENTIN
  22. GABAPENTIN [Concomitant]
     Active Substance: GABAPENTIN
  23. GABAPENTIN [Concomitant]
     Active Substance: GABAPENTIN
  24. HUMIRA [Concomitant]
     Active Substance: ADALIMUMAB
  25. HUMIRA [Concomitant]
     Active Substance: ADALIMUMAB
  26. ACETAMINOPHEN\HYDROCODONE [Concomitant]
     Active Substance: ACETAMINOPHEN\HYDROCODONE
  27. HYDROXYCHLOROQUINE [Concomitant]
     Active Substance: HYDROXYCHLOROQUINE
  28. KENALOG [Concomitant]
     Active Substance: TRIAMCINOLONE ACETONIDE
  29. LEFLUNOMIDE [Concomitant]
     Active Substance: LEFLUNOMIDE
  30. LEFLUNOMIDE [Concomitant]
     Active Substance: LEFLUNOMIDE
  31. METHYLPR ACE [Concomitant]
  32. METHYLPREDNISOLONE [Concomitant]
     Active Substance: METHYLPREDNISOLONE
  33. OXCARBAZEPINE [Concomitant]
     Active Substance: OXCARBAZEPINE
  34. OXYBUTYNIN [Concomitant]
     Active Substance: OXYBUTYNIN
  35. PREDNISONE [Concomitant]
     Active Substance: PREDNISONE
  36. QUETIAPINE [Concomitant]
     Active Substance: QUETIAPINE
  37. SEROQUEL [Concomitant]
     Active Substance: QUETIAPINE FUMARATE
  38. TOPIRAMATE [Concomitant]
     Active Substance: TOPIRAMATE
  39. TOPIRAMATE [Concomitant]
     Active Substance: TOPIRAMATE
  40. TRAMADOL HCL [Concomitant]
     Active Substance: TRAMADOL HYDROCHLORIDE
  41. XANAX [Concomitant]
     Active Substance: ALPRAZOLAM
  42. ZOFRAN [Concomitant]
     Active Substance: ONDANSETRON HYDROCHLORIDE

REACTIONS (1)
  - Pneumonia legionella [None]
